FAERS Safety Report 13380574 (Version 1)
Quarter: 2017Q1

REPORT INFORMATION
  Report Type: Spontaneous
  Country: FR (occurrence: FR)
  Receive Date: 20170329
  Receipt Date: 20170329
  Transmission Date: 20170429
  Serious: Yes (Hospitalization)
  Sender: FDA-Public Use
  Company Number: FR-ACCORD-049569

PATIENT
  Age: 58 Year
  Sex: Female

DRUGS (13)
  1. VENTOLINE [Concomitant]
     Active Substance: ALBUTEROL
  2. EUPANTOL [Concomitant]
     Active Substance: PANTOPRAZOLE SODIUM
  3. METFORMIN [Concomitant]
     Active Substance: METFORMIN HYDROCHLORIDE
  4. DOCETAXEL ACCORD [Suspect]
     Active Substance: DOCETAXEL
     Indication: BREAST CANCER
     Dosage: 200 MG ONCE PER CYCLE
     Route: 042
     Dates: start: 20161104, end: 20161104
  5. KARDEGIC [Concomitant]
     Active Substance: ASPIRIN LYSINE
  6. HEPARIN [Concomitant]
     Active Substance: HEPARIN SODIUM
  7. PARACETAMOL [Concomitant]
     Active Substance: ACETAMINOPHEN
  8. VALSARTAN. [Concomitant]
     Active Substance: VALSARTAN
  9. GLICLAZIDE [Concomitant]
     Active Substance: GLICLAZIDE
  10. ATORVASTATIN [Concomitant]
     Active Substance: ATORVASTATIN
  11. HERCEPTIN [Concomitant]
     Active Substance: TRASTUZUMAB
     Indication: BREAST CANCER
     Route: 058
     Dates: start: 20161104
  12. ATENOLOL/ATENOLOL HYDROCHLORIDE [Concomitant]
  13. NOVORAPID [Concomitant]
     Active Substance: INSULIN ASPART

REACTIONS (4)
  - Acute kidney injury [Recovered/Resolved]
  - Diarrhoea [Recovered/Resolved]
  - Hyperkalaemia [Recovered/Resolved]
  - Vomiting [Recovered/Resolved]

NARRATIVE: CASE EVENT DATE: 20161107
